FAERS Safety Report 20151169 (Version 1)
Quarter: 2021Q4

REPORT INFORMATION
  Report Type: Spontaneous
  Country: US (occurrence: None)
  Receive Date: 20211205
  Receipt Date: 20211205
  Transmission Date: 20220303
  Serious: Yes (Hospitalization)
  Sender: FDA-Public Use
  Company Number: None

PATIENT
  Age: 75 Year
  Sex: Female
  Weight: 80.29 kg

DRUGS (1)
  1. SUNITINIB [Suspect]
     Active Substance: SUNITINIB
     Indication: Malignant neoplasm of thymus
     Dosage: OTHER FREQUENCY : QDX21D,7D OFF ;?
     Route: 048
     Dates: start: 20211019

REACTIONS (3)
  - Renal impairment [None]
  - Dehydration [None]
  - Therapy interrupted [None]
